FAERS Safety Report 10506340 (Version 3)
Quarter: 2015Q1

REPORT INFORMATION
  Report Type: Spontaneous
  Country: US (occurrence: US)
  Receive Date: 20141009
  Receipt Date: 20150326
  Transmission Date: 20150720
  Serious: Yes (Death)
  Sender: FDA-Public Use
  Company Number: US-BEH-2014045383

PATIENT
  Age: 76 Year
  Sex: Female

DRUGS (2)
  1. HIZENTRA [Suspect]
     Active Substance: HUMAN IMMUNOGLOBULIN G
     Indication: IMMUNODEFICIENCY COMMON VARIABLE
     Route: 058
     Dates: start: 20101209
  2. HIZENTRA [Suspect]
     Active Substance: HUMAN IMMUNOGLOBULIN G
     Dosage: 15 GM EVERY 14 DAYS
     Route: 058
     Dates: end: 20140705

REACTIONS (2)
  - Respiratory failure [Fatal]
  - Death [Fatal]

NARRATIVE: CASE EVENT DATE: 20140705
